FAERS Safety Report 6466196-5 (Version None)
Quarter: 2009Q4

REPORT INFORMATION
  Report Type: 
  Country: None (occurrence: None)
  Receive Date: 20091202
  Receipt Date: 20091118
  Transmission Date: 20100525
  Serious: Yes (Other)
  Sender: FDA-Public Use
  Company Number: JP-BAYER-200940121GPV

PATIENT
  Age: 55 Year
  Sex: Female

DRUGS (7)
  1. FLUDARABINE [Suspect]
     Indication: CORD BLOOD TRANSPLANT THERAPY
     Dosage: TOTAL DAILY DOSE: 25 MG/M2
     Route: 065
     Dates: start: 20081201, end: 20081201
  2. GEMTUZUMAB OZOGAMICIN [Suspect]
     Indication: CORD BLOOD TRANSPLANT THERAPY
     Dosage: TOTAL DAILY DOSE: 6 MG/M2
     Dates: start: 20081201, end: 20081201
  3. MELPHALAN [Suspect]
     Indication: CORD BLOOD TRANSPLANT THERAPY
     Dosage: TOTAL DAILY DOSE: 40 MG/M2
     Dates: start: 20081201, end: 20081201
  4. ARA-C [Suspect]
     Indication: ACUTE MYELOID LEUKAEMIA
     Dosage: AS USED: 2 G
     Dates: start: 20081201, end: 20081201
  5. CYCLOSPORINE [Concomitant]
     Indication: PROPHYLAXIS AGAINST GRAFT VERSUS HOST DISEASE
     Dates: start: 20081201
  6. MYCOPHENOLATE MOFETIL [Concomitant]
     Indication: PROPHYLAXIS AGAINST GRAFT VERSUS HOST DISEASE
     Dates: start: 20081201
  7. LOW-MOLECULAR-WEIGHT HEPARIN [Concomitant]
     Indication: PROPHYLAXIS
     Dates: start: 20081201

REACTIONS (7)
  - ACUTE GRAFT VERSUS HOST DISEASE [None]
  - HYPERBILIRUBINAEMIA [None]
  - NEUTROPENIA [None]
  - PYREXIA [None]
  - THROMBOCYTOPENIA [None]
  - TRANSAMINASES INCREASED [None]
  - WEIGHT INCREASED [None]
